FAERS Safety Report 8267781-0 (Version None)
Quarter: 2012Q2

REPORT INFORMATION
  Report Type: 
  Country: None (occurrence: None)
  Receive Date: 20120409
  Receipt Date: 20120330
  Transmission Date: 20120825
  Serious: Yes (Hospitalization, Other)
  Sender: FDA-Public Use
  Company Number: US-BAYER-2011-072616

PATIENT
  Age: 38 Year
  Sex: Female
  Weight: 95.238 kg

DRUGS (5)
  1. YAZ [Suspect]
     Indication: MENORRHAGIA
  2. NSAID'S [Concomitant]
     Dosage: UNK UNK, PRN
     Route: 048
  3. MAXALT-MLT [Concomitant]
     Indication: MIGRAINE
     Dosage: UNK
     Route: 048
     Dates: start: 19830101, end: 20100401
  4. AMBIEN [Concomitant]
     Route: 048
  5. YAZ [Suspect]
     Indication: PREMENSTRUAL SYNDROME
     Dosage: UNK
     Dates: start: 20080301, end: 20080701

REACTIONS (8)
  - PULMONARY EMBOLISM [None]
  - PAIN [None]
  - DYSPNOEA [None]
  - CHEST PAIN [None]
  - ANXIETY [None]
  - INJURY [None]
  - PLEURAL EFFUSION [None]
  - ANHEDONIA [None]
